FAERS Safety Report 11339276 (Version 1)
Quarter: 2015Q3

REPORT INFORMATION
  Report Type: Report from Study
  Country: MX (occurrence: MX)
  Receive Date: 20150804
  Receipt Date: 20150804
  Transmission Date: 20151125
  Serious: Yes (Hospitalization)
  Sender: FDA-Public Use
  Company Number: MX-ABBVIE-15K-107-1431957-00

PATIENT
  Age: 10 Year
  Sex: Male
  Weight: 28 kg

DRUGS (14)
  1. METHOTREXATE [Suspect]
     Active Substance: METHOTREXATE
     Route: 048
     Dates: start: 20150707, end: 20150721
  2. HUMIRA [Suspect]
     Active Substance: ADALIMUMAB
     Indication: JUVENILE IDIOPATHIC ARTHRITIS
     Route: 058
     Dates: start: 20150626
  3. METHOTREXATE [Suspect]
     Active Substance: METHOTREXATE
     Indication: JUVENILE IDIOPATHIC ARTHRITIS
     Dosage: 9 ON SATURDAYS
     Route: 048
     Dates: start: 201504, end: 20150707
  4. METICORTEN [Concomitant]
     Active Substance: PREDNISONE
     Indication: JUVENILE IDIOPATHIC ARTHRITIS
     Route: 048
     Dates: start: 201504, end: 20150707
  5. METICORTEN [Concomitant]
     Active Substance: PREDNISONE
     Route: 048
     Dates: start: 20150707
  6. METHOTREXATE [Suspect]
     Active Substance: METHOTREXATE
     Dosage: 9 TABLETS
     Route: 048
     Dates: start: 20150721
  7. NAPROXEN. [Concomitant]
     Active Substance: NAPROXEN
     Indication: INFLAMMATION
  8. NAPROXEN. [Concomitant]
     Active Substance: NAPROXEN
     Indication: PAIN
     Route: 048
     Dates: start: 20150707
  9. FOLIC ACID. [Concomitant]
     Active Substance: FOLIC ACID
     Indication: VITAMIN SUPPLEMENTATION
     Route: 048
     Dates: start: 201504
  10. OMEPRAZOLE. [Concomitant]
     Active Substance: OMEPRAZOLE
     Indication: GASTRIC DISORDER
     Route: 048
     Dates: start: 201504
  11. PREDNISONE. [Concomitant]
     Active Substance: PREDNISONE
     Indication: PAIN
     Route: 048
     Dates: start: 20150707
  12. ANAPROX [Concomitant]
     Active Substance: NAPROXEN SODIUM
     Indication: PAIN
     Dosage: ACETAMINOPHEN 300 MG, NAPROXEN 275 MG.
     Route: 048
     Dates: start: 201504, end: 20150707
  13. VITAMIN D [Concomitant]
     Active Substance: CHOLECALCIFEROL
     Indication: VITAMIN SUPPLEMENTATION
     Route: 048
     Dates: start: 201504
  14. CALCIUM [Concomitant]
     Active Substance: CALCIUM
     Indication: VITAMIN SUPPLEMENTATION
     Route: 048
     Dates: start: 201504

REACTIONS (10)
  - Oral infection [Recovering/Resolving]
  - Oral pain [Recovering/Resolving]
  - Mouth haemorrhage [Recovered/Resolved]
  - Thrombocytopenia [Unknown]
  - Oral disorder [Recovering/Resolving]
  - Overdose [Unknown]
  - Depressed mood [Not Recovered/Not Resolved]
  - Oral discomfort [Recovering/Resolving]
  - Diarrhoea [Recovered/Resolved]
  - Pyrexia [Recovered/Resolved]

NARRATIVE: CASE EVENT DATE: 2015
